FAERS Safety Report 6654123-7 (Version None)
Quarter: 2010Q1

REPORT INFORMATION
  Report Type: 
  Country: None (occurrence: None)
  Receive Date: 20100326
  Receipt Date: 20100316
  Transmission Date: 20100710
  Serious: Yes (Death, Other)
  Sender: FDA-Public Use
  Company Number: CA-PFIZER INC-2010033621

PATIENT
  Age: 57 Year
  Sex: Male
  Weight: 88.435 kg

DRUGS (16)
  1. SUTENT [Suspect]
     Indication: RENAL CELL CARCINOMA
     Dosage: 50 MG, 2X/DAY, 4 WEEKS ON, 2 WEEKS OFF
     Route: 048
     Dates: start: 20090521, end: 20100103
  2. LAMOTRIGINE [Concomitant]
     Dosage: 50 MG, 2X/DAY
     Route: 048
  3. LAMOTRIGINE [Concomitant]
     Dosage: 25 MG, 2X/DAY
     Route: 048
     Dates: start: 20100118
  4. PAROXETINE [Concomitant]
     Dosage: 60 MG, 1X/DAY
     Route: 048
  5. DEXTROAMPHETAMINE [Concomitant]
     Dosage: 15 MG, 2X/DAY, MORNING AND NOON
     Route: 048
  6. ELTROXIN [Concomitant]
     Dosage: 150 UG, 1X/DAY
     Route: 048
  7. ELTROXIN [Concomitant]
     Dosage: 0.2 MG, 1X/DAY
     Route: 048
     Dates: start: 20100120, end: 20100120
  8. ELTROXIN [Concomitant]
     Dosage: 0.35 MG, UNK
     Route: 042
     Dates: start: 20100121
  9. VENLAFAXINE [Concomitant]
     Dosage: 150 MG MORNING, 300 MG NIGHT
  10. LITHIUM [Concomitant]
     Dosage: 900 MG, 1X/DAY AT BEDTIME
     Route: 048
  11. MIRTAZAPINE [Concomitant]
     Dosage: 15 MG, 1X/DAY AT BEDTIME
     Route: 048
  12. MIRTAZAPINE [Concomitant]
     Dosage: 7.5 MG, 1X/DAY AT BEDTIME
     Route: 048
     Dates: start: 20100118
  13. ZOPICLONE [Concomitant]
     Dosage: 7.5 MG, 1X/DAY AT BEDTIME
     Route: 048
  14. LORAZEPAM [Concomitant]
     Dosage: 1 MG, AS NEEDED
     Route: 060
  15. MIDAZOLAM [Concomitant]
     Dosage: 2 MG, UNK
     Route: 042
  16. MORPHINE [Concomitant]
     Dosage: 2-5 MG, AS NEEDED
     Route: 042

REACTIONS (1)
  - ACUTE HEPATIC FAILURE [None]
